FAERS Safety Report 6455643-0 (Version None)
Quarter: 2009Q4

REPORT INFORMATION
  Report Type: 
  Country: None (occurrence: None)
  Receive Date: 20091125
  Receipt Date: 20090911
  Transmission Date: 20100525
  Serious: No
  Sender: FDA-Public Use
  Company Number: US-ABBOTT-09P-163-0597404-00

PATIENT
  Age: 63 Year
  Sex: Male

DRUGS (8)
  1. SIMCOR [Suspect]
     Indication: BLOOD CHOLESTEROL INCREASED
     Dosage: 500/20MG
     Dates: start: 20090101, end: 20090301
  2. SIMCOR [Suspect]
     Dosage: TWO 500/20MG TABLETS A 500/20MG X 2
     Dates: start: 20090301, end: 20090901
  3. SIMCOR [Suspect]
     Dosage: 500/20MG
     Dates: start: 20090901
  4. OVER THE COUNTER COLD MEDICATION [Suspect]
     Indication: NASOPHARYNGITIS
     Dosage: UNKNOWN
     Dates: start: 20090501, end: 20090501
  5. AVAPRO [Concomitant]
     Indication: HYPERTENSION
  6. METOPROLOL TARTRATE [Concomitant]
     Indication: HYPERTENSION
  7. FLOMAX [Concomitant]
     Indication: PROSTATOMEGALY
  8. PROTONIX [Concomitant]
     Indication: GASTROOESOPHAGEAL REFLUX DISEASE

REACTIONS (2)
  - FLUSHING [None]
  - NASOPHARYNGITIS [None]
